FAERS Safety Report 14864826 (Version 1)
Quarter: 2018Q2

REPORT INFORMATION
  Report Type: Report from Study
  Country: US (occurrence: US)
  Receive Date: 20180508
  Receipt Date: 20180508
  Transmission Date: 20180711
  Serious: Yes (Hospitalization, Other)
  Sender: FDA-Public Use
  Company Number: US-ALKERMES INC.-ALK-2017-002526

PATIENT
  Age: 43 Year
  Sex: Female
  Weight: 115.19 kg

DRUGS (7)
  1. VIVITROL [Suspect]
     Active Substance: NALTREXONE
     Indication: DRUG DEPENDENCE
     Dosage: 380 UNK, QMO
     Route: 030
     Dates: start: 20170110, end: 20170110
  2. DEPAKOTE [Concomitant]
     Active Substance: DIVALPROEX SODIUM
     Indication: PRODUCT USED FOR UNKNOWN INDICATION
     Dosage: 500 MG, BID
  3. COLACE [Concomitant]
     Active Substance: DOCUSATE SODIUM
     Indication: PRODUCT USED FOR UNKNOWN INDICATION
     Dosage: 100 MG, HS
  4. LISINOPRIL. [Concomitant]
     Active Substance: LISINOPRIL
     Indication: PRODUCT USED FOR UNKNOWN INDICATION
     Dosage: 20 MG, QD
  5. COGENTIN [Concomitant]
     Active Substance: BENZTROPINE MESYLATE
     Indication: PRODUCT USED FOR UNKNOWN INDICATION
     Dosage: 1 MG, BID
     Route: 048
  6. HALDOL [Concomitant]
     Active Substance: HALOPERIDOL
     Indication: PRODUCT USED FOR UNKNOWN INDICATION
     Dosage: 2 MG, BID
     Route: 048
  7. CELEXA [Concomitant]
     Active Substance: CITALOPRAM HYDROBROMIDE
     Indication: PRODUCT USED FOR UNKNOWN INDICATION
     Dosage: 40 MG, BID

REACTIONS (32)
  - Schizophrenia [Recovered/Resolved]
  - Psychotic disorder [Recovered/Resolved]
  - Bacterial vaginosis [Unknown]
  - Hallucination, auditory [Recovered/Resolved]
  - Aggression [Recovered/Resolved]
  - Homeless [Recovered/Resolved]
  - Flight of ideas [Recovered/Resolved]
  - Treatment noncompliance [Recovered/Resolved]
  - Judgement impaired [Recovered/Resolved]
  - Abdominal pain upper [Recovered/Resolved]
  - Impulsive behaviour [Recovered/Resolved]
  - Poor personal hygiene [Recovered/Resolved]
  - Pressure of speech [Recovered/Resolved]
  - Mental disorder [Recovered/Resolved]
  - Tongue discolouration [Recovered/Resolved]
  - Homicidal ideation [Recovered/Resolved]
  - Tachyphrenia [Recovered/Resolved]
  - Hypertension [Recovered/Resolved]
  - Poor quality sleep [Recovered/Resolved]
  - Irritability [Recovered/Resolved]
  - Abnormal behaviour [Recovered/Resolved]
  - Thinking abnormal [Recovered/Resolved]
  - Substance abuse [Recovered/Resolved]
  - Restlessness [Recovered/Resolved]
  - Jealous delusion [Recovered/Resolved]
  - Self-injurious ideation [Recovered/Resolved]
  - Euphoric mood [Recovered/Resolved]
  - Loose associations [Recovered/Resolved]
  - Schizoaffective disorder [Recovered/Resolved]
  - Drug dependence [Recovered/Resolved]
  - Psychomotor hyperactivity [Recovered/Resolved]
  - Dysphonia [Recovered/Resolved]

NARRATIVE: CASE EVENT DATE: 20170611
